FAERS Safety Report 15674726 (Version 1)
Quarter: 2018Q4

REPORT INFORMATION
  Report Type: Spontaneous
  Country: US (occurrence: US)
  Receive Date: 20181129
  Receipt Date: 20181129
  Transmission Date: 20190205
  Serious: No
  Sender: FDA-Public Use
  Company Number: None

PATIENT
  Sex: Female

DRUGS (4)
  1. LOSARTAN-HCTZ100-25-MGTAB [Suspect]
     Active Substance: HYDROCHLOROTHIAZIDE\LOSARTAN
  2. VITAMIN C [Concomitant]
     Active Substance: ASCORBIC ACID
  3. TYLENOL [Concomitant]
     Active Substance: ACETAMINOPHEN
  4. IBURPROFEN [Concomitant]

REACTIONS (5)
  - Headache [None]
  - Pain [None]
  - Vision blurred [None]
  - Dyspnoea [None]
  - Swelling [None]
